FAERS Safety Report 6492110-2 (Version None)
Quarter: 2009Q4

REPORT INFORMATION
  Report Type: 
  Country: None (occurrence: None)
  Receive Date: 20091125
  Receipt Date: 20090520
  Transmission Date: 20100525
  Serious: Yes (Other)
  Sender: FDA-Public Use
  Company Number: 2009BH008844

PATIENT
  Sex: Female

DRUGS (14)
  1. DIANEAL [Suspect]
     Indication: PERITONEAL DIALYSIS
     Dosage: 12 L; EVERY DAY; IP
     Route: 033
     Dates: start: 20051227
  2. ALBUTEROL [Concomitant]
  3. ASPIRIN [Concomitant]
  4. CALCITRIOL [Concomitant]
  5. CLONAZEPAM [Concomitant]
  6. DILTIAZEM [Concomitant]
  7. ENALAPRIL [Concomitant]
  8. EPOGEN [Concomitant]
  9. FIBERCON [Concomitant]
  10. LACTULOSE [Concomitant]
  11. NEPHROCAPS [Concomitant]
  12. PRILOSEC [Concomitant]
  13. SIMVASTATIN [Concomitant]
  14. RENAGEL [Concomitant]

REACTIONS (2)
  - PERITONEAL DIALYSIS COMPLICATION [None]
  - PERITONITIS BACTERIAL [None]
